FAERS Safety Report 9001319 (Version 1)
Quarter: 2013Q1

REPORT INFORMATION
  Report Type: Spontaneous
  Country: US (occurrence: US)
  Receive Date: 20130107
  Receipt Date: 20130107
  Transmission Date: 20140127
  Serious: No
  Sender: FDA-Public Use
  Company Number: US-ASTRAZENECA-2012SE96502

PATIENT
  Age: 75 Year
  Sex: Female

DRUGS (1)
  1. SYMBICORT  PMDI [Suspect]
     Dosage: UNKNOWN
     Route: 055

REACTIONS (3)
  - Malaise [Unknown]
  - Nasal congestion [Unknown]
  - Cough [Unknown]
